FAERS Safety Report 9519965 (Version 1)
Quarter: 2013Q1

REPORT INFORMATION
  Report Type: Spontaneous
  Country: US (occurrence: None)
  Receive Date: 20130305
  Receipt Date: 20130305
  Transmission Date: 20140127
  Serious: Yes (Other)
  Sender: FDA-Public Use
  Company Number: 163-21880-11123331

PATIENT
  Age: 56 Year
  Sex: Male

DRUGS (9)
  1. REVLIMID (LENALIDOMIDE) (25 MILLIGRAM, CAPSULES) [Suspect]
     Indication: PLASMA CELL MYELOMA
     Dosage: DAILY FOR 14 DAYS EVERY 21 DAYS
     Route: 048
     Dates: start: 20111104, end: 20111118
  2. DEXAMETHASONE (DEXAMETHASONE) [Concomitant]
  3. STEROIDS (STEROID ANTIBACTERIALS) [Concomitant]
  4. HYDROCHLOROTHIAZIDE (HYDROCHLOROTHIAZIDE) (TABLETS) [Concomitant]
  5. LISINOPRIL (LISINOPRIL) (TABLETS) [Concomitant]
  6. ALLOPURINOL (ALLOPURINOL) (TABLETS) [Concomitant]
  7. ACYCLOVIR (ACICLOVIR) (TABLETS) [Concomitant]
  8. ASPIRIN (ACETYLSALICYLIC ACID) (TABLETS) [Concomitant]
  9. LASIX (FUROSEMIDE) (TABLETS) [Concomitant]

REACTIONS (2)
  - Urticaria [None]
  - Sinusitis [None]
